FAERS Safety Report 8545803-7 (Version None)
Quarter: 2012Q3

REPORT INFORMATION
  Report Type: 
  Country: None (occurrence: None)
  Receive Date: 20120727
  Receipt Date: 20120720
  Transmission Date: 20120928
  Serious: Yes (Hospitalization, Disabling, Other)
  Sender: FDA-Public Use
  Company Number: JP-BAXTER-2012BAX004143

PATIENT
  Age: 33 Year
  Sex: Female

DRUGS (2)
  1. CYCLOPHOSPHAMIDE [Suspect]
     Indication: BREAST CANCER
     Route: 048
     Dates: start: 20080901, end: 20110801
  2. HALAVEN [Suspect]
     Indication: BREAST CANCER
     Route: 042
     Dates: start: 20110912, end: 20111031

REACTIONS (2)
  - CYSTITIS HAEMORRHAGIC [None]
  - SHOCK HAEMORRHAGIC [None]
